FAERS Safety Report 14263590 (Version 3)
Quarter: 2018Q1

REPORT INFORMATION
  Report Type: Report from Study
  Country: US (occurrence: US)
  Receive Date: 20171208
  Receipt Date: 20180209
  Transmission Date: 20180508
  Serious: Yes (Hospitalization)
  Sender: FDA-Public Use
  Company Number: US-TARO-2017TAR01050

PATIENT
  Age: 16 Year
  Sex: Female
  Weight: 78.91 kg

DRUGS (8)
  1. BLINDED TRETINOIN CREAM 0.1 % [Suspect]
     Active Substance: TRETINOIN
     Indication: ACNE
     Dosage: 1 DOSAGE UNITS, 1X/DAY
     Route: 061
     Dates: start: 20171012, end: 20180102
  2. BLINDED PLACEBO [Suspect]
     Active Substance: INVESTIGATIONAL PRODUCT
     Indication: ACNE
     Dosage: 1 DOSAGE UNITS, 1X/DAY
     Route: 061
     Dates: start: 20171012, end: 20180102
  3. RETIN-A [Suspect]
     Active Substance: TRETINOIN
     Indication: ACNE
     Dosage: 1 DOSAGE UNITS, 1X/DAY
     Route: 061
     Dates: start: 20171012, end: 20180102
  4. TYLENOL [Concomitant]
     Active Substance: ACETAMINOPHEN
  5. DUONEB [Concomitant]
     Active Substance: ALBUTEROL SULFATE\IPRATROPIUM BROMIDE
     Dosage: 3 ML, 4X/DAY
     Route: 055
  6. FLONASE [Concomitant]
     Active Substance: FLUTICASONE PROPIONATE
     Dosage: 1 DOSAGE UNITS (SPRAY), 1X/DAY AS NEEDED
     Route: 045
  7. SINGULAIR [Concomitant]
     Active Substance: MONTELUKAST SODIUM
     Dosage: 10 MG, 1X/DAY AT HS
     Route: 048
  8. SYMBICORT [Concomitant]
     Active Substance: BUDESONIDE\FORMOTEROL FUMARATE DIHYDRATE
     Dosage: 2 DOSAGE UNITS (PUFFS), 2X/DAY
     Route: 055

REACTIONS (2)
  - Constipation [Recovered/Resolved]
  - Rectal haemorrhage [Recovered/Resolved]

NARRATIVE: CASE EVENT DATE: 20171115
